FAERS Safety Report 20346959 (Version 2)
Quarter: 2022Q1

REPORT INFORMATION
  Report Type: Spontaneous
  Country: US (occurrence: US)
  Receive Date: 20220118
  Receipt Date: 20220126
  Transmission Date: 20220424
  Serious: Yes (Other)
  Sender: FDA-Public Use
  Company Number: US-TAKEDA-2022TUS002535

PATIENT
  Age: 76 Year
  Sex: Male

DRUGS (1)
  1. ANAGRELIDE [Suspect]
     Active Substance: ANAGRELIDE
     Indication: Thrombocytosis
     Dosage: UNK
     Route: 065

REACTIONS (2)
  - Pericardial effusion [Recovering/Resolving]
  - Transaminases increased [Recovered/Resolved]
